FAERS Safety Report 8240787-3 (Version None)
Quarter: 2012Q1

REPORT INFORMATION
  Report Type: 
  Country: None (occurrence: None)
  Receive Date: 20120328
  Receipt Date: 20120321
  Transmission Date: 20120608
  Serious: Yes (Other)
  Sender: FDA-Public Use
  Company Number: PHHY2012FR025541

PATIENT
  Sex: Male

DRUGS (3)
  1. RASILEZ [Suspect]
     Dosage: 150 MG
     Route: 048
     Dates: start: 20120220
  2. RASILEZ HCT [Suspect]
     Indication: HYPERTENSION
     Dosage: 1 DF
  3. RASILEZ [Suspect]
     Indication: HYPERTENSION
     Dosage: 1 DF
     Route: 048

REACTIONS (3)
  - DYSPHAGIA [None]
  - DRY MOUTH [None]
  - CONDITION AGGRAVATED [None]
